FAERS Safety Report 5627727-8 (Version None)
Quarter: 2008Q1

REPORT INFORMATION
  Report Type: 
  Country: None (occurrence: None)
  Receive Date: 20080214
  Receipt Date: 20080214
  Transmission Date: 20080703
  Serious: Yes (Other)
  Sender: FDA-Public Use
  Company Number: None

PATIENT
  Age: 46 Year
  Sex: Female
  Weight: 93.441 kg

DRUGS (1)
  1. PROPOFOL [Suspect]
     Indication: COLONOSCOPY
     Dosage: 420 MG CONT INFUSION IV
     Route: 042
     Dates: start: 20080206

REACTIONS (3)
  - CHILLS [None]
  - HEADACHE [None]
  - PYREXIA [None]
